FAERS Safety Report 21199136 (Version 2)
Quarter: 2022Q4

REPORT INFORMATION
  Report Type: Report from Study
  Country: US (occurrence: US)
  Receive Date: 20220811
  Receipt Date: 20221109
  Transmission Date: 20230112
  Serious: No
  Sender: FDA-Public Use
  Company Number: US-NOVARTISTESTPH-NVSC2022US181222

PATIENT
  Age: 40 Year
  Sex: Female

DRUGS (1)
  1. KESIMPTA [Suspect]
     Active Substance: OFATUMUMAB
     Indication: Multiple sclerosis
     Dosage: 20 MG, QMO
     Route: 058
     Dates: start: 202207

REACTIONS (3)
  - Feeling abnormal [Recovering/Resolving]
  - Gait disturbance [Unknown]
  - Eye disorder [Unknown]

NARRATIVE: CASE EVENT DATE: 20220803
